FAERS Safety Report 22341276 (Version 1)
Quarter: 2023Q2

REPORT INFORMATION
  Report Type: Report from Study
  Country: CA (occurrence: CA)
  Receive Date: 20230518
  Receipt Date: 20230518
  Transmission Date: 20230721
  Serious: Yes (Other)
  Sender: FDA-Public Use
  Company Number: CA-HLS-202301067

PATIENT
  Age: 66 Year
  Sex: Male

DRUGS (1)
  1. CLOZARIL [Suspect]
     Active Substance: CLOZAPINE
     Indication: Product used for unknown indication
     Route: 048
     Dates: start: 20070502, end: 20230510

REACTIONS (3)
  - Neutrophilia [Unknown]
  - Therapy interrupted [Not Recovered/Not Resolved]
  - Leukocytosis [Unknown]

NARRATIVE: CASE EVENT DATE: 20230510
